FAERS Safety Report 8480722-6 (Version None)
Quarter: 2012Q2

REPORT INFORMATION
  Report Type: 
  Country: None (occurrence: None)
  Receive Date: 20120626
  Receipt Date: 20120619
  Transmission Date: 20120825
  Serious: Yes (Other)
  Sender: FDA-Public Use
  Company Number: DSA_57981_2012

PATIENT
  Sex: Female

DRUGS (1)
  1. XENAZINE [Suspect]
     Indication: DYSKINESIA
     Dosage: 1.5 TABLET ONCE DAILY, ORAL
     Route: 048
     Dates: start: 20110609

REACTIONS (1)
  - SUICIDAL IDEATION [None]
